FAERS Safety Report 20850342 (Version 1)
Quarter: 2022Q2

REPORT INFORMATION
  Report Type: Spontaneous
  Country: US (occurrence: None)
  Receive Date: 20220518
  Receipt Date: 20220518
  Transmission Date: 20220720
  Serious: No
  Sender: FDA-Public Use
  Company Number: None

PATIENT
  Age: 3 Year
  Sex: Female
  Weight: 20.7 kg

DRUGS (1)
  1. BANANA BOAT (TITANIUM DIOXIDE\ZINC OXIDE) [Suspect]
     Active Substance: TITANIUM DIOXIDE\ZINC OXIDE
     Indication: Prophylaxis against solar radiation
     Dates: start: 20220516, end: 20220518

REACTIONS (1)
  - Application site rash [None]

NARRATIVE: CASE EVENT DATE: 20220517
